FAERS Safety Report 11924298 (Version 1)
Quarter: 2016Q1

REPORT INFORMATION
  Report Type: Spontaneous
  Country: US (occurrence: US)
  Receive Date: 20160118
  Receipt Date: 20160118
  Transmission Date: 20160526
  Serious: No
  Sender: FDA-Public Use
  Company Number: US-PERRIGO-15US007536

PATIENT
  Age: 47 Year
  Sex: Female
  Weight: 94.33 kg

DRUGS (5)
  1. REMERON [Concomitant]
     Active Substance: MIRTAZAPINE
     Indication: SLEEP DISORDER
     Dosage: UNKNOWN, UNKNOWN
     Route: 065
     Dates: start: 20150520
  2. TYLENOL WITH CODEINE [Concomitant]
     Active Substance: ACETAMINOPHEN\CODEINE PHOSPHATE
     Indication: PAIN
     Dosage: UNKNOWN, UNKNOWN
     Route: 065
     Dates: start: 20150520
  3. TIOCONAZOLE 6.5% 426 [Suspect]
     Active Substance: TIOCONAZOLE
     Indication: FUNGAL INFECTION
     Dosage: 300 MG, SINGLE
     Route: 067
     Dates: start: 20150707, end: 20150707
  4. KEPPRA [Concomitant]
     Active Substance: LEVETIRACETAM
     Indication: PROPHYLAXIS
     Dosage: UNKNOWN, UNKNOWN
     Route: 065
     Dates: start: 20150520
  5. FLEXERIL [Concomitant]
     Active Substance: CYCLOBENZAPRINE HYDROCHLORIDE
     Indication: MUSCLE RELAXANT THERAPY
     Dosage: UNKNOWN, UNKNOWN
     Route: 065
     Dates: start: 20150520

REACTIONS (1)
  - Drug ineffective [Unknown]

NARRATIVE: CASE EVENT DATE: 20150707
